FAERS Safety Report 15158008 (Version 1)
Quarter: 2018Q3

REPORT INFORMATION
  Report Type: Spontaneous
  Country: US (occurrence: US)
  Receive Date: 20180620
  Receipt Date: 20180620
  Transmission Date: 20181010
  Serious: Yes (Hospitalization)
  Sender: FDA-Public Use
  Company Number: None

PATIENT
  Age: 65 Year
  Sex: Female
  Weight: 72.1 kg

DRUGS (23)
  1. TYLENOL 325MG TABLET SIG 2 PO Q 4H PRN FEVER } 100.9 DEGREES F [Concomitant]
     Dates: start: 20171110, end: 20171124
  2. ZEMPLAR 5MCG IV ON MON, WEDS + FRI WITH EACH HEMODIALYSIS TX [Concomitant]
     Dates: start: 20171113, end: 20171124
  3. LOPERAMIDE 2MG CAPSULE SIG 1 PO Q 12?24 HOURS ORN FOR LOOSE STOOLS [Concomitant]
     Dates: start: 20171114, end: 20171124
  4. MERREM 500MG IVPB Q 12H [Concomitant]
     Dates: start: 20171122, end: 20171124
  5. CEFEPIME [Suspect]
     Active Substance: CEFEPIME HYDROCHLORIDE
     Indication: OSTEOMYELITIS
     Route: 040
     Dates: start: 20171114, end: 20171117
  6. GABAPENTIN CAPSULE 300MG SIG 1 PO THREE TIMES A DAY [Concomitant]
     Dates: start: 20171111, end: 20171121
  7. LACTOBACILLUS PACKET SIG 1 PACKAGE CONTENTS PO THREE TIMES A DAY [Concomitant]
     Dates: start: 20171114, end: 20171124
  8. PROCRIT 10,000 UNITS IV Q MON, WEDS + FRI WITH DIALYSIS [Concomitant]
     Dates: start: 20171113, end: 20171124
  9. NOVOLOG INSULIN 12UNITS SLIDING SCALE COVERAGE Q 6H [Concomitant]
     Dates: start: 20171111, end: 20171124
  10. LISINOPRIL 20MG TABLET SIG 1 PO Q DAY [Concomitant]
     Dates: start: 20171111, end: 20171124
  11. RENVELA 800MG TABLET SIG 2 PO 3X DAILY WITH MEALS [Concomitant]
     Dates: start: 20171111, end: 20171124
  12. PERCOCET 5?325MG TABLET SIG 1 PO Q 4H PRN FOR MODERATE PAIN [Concomitant]
     Dates: start: 20171110, end: 20171114
  13. VANCO 1.5GM IV X1 (ON 11/10), 1GM IV X1 (11/13) + 1.25GM IV X1 (11/21) [Concomitant]
     Dates: start: 20171110, end: 20171124
  14. PERCOCET 5?325MG TABLET SIG 1?2 PO Q 4?6H PRN FOR MODERATE PAIN [Concomitant]
     Dates: start: 20171114, end: 20171124
  15. BACTROBAN 2% OINT. SIG 1 APPLICATION TOPICALLY ONCE D DAY [Concomitant]
     Dates: start: 20171114, end: 20171124
  16. CEFEPIME [Suspect]
     Active Substance: CEFEPIME HYDROCHLORIDE
     Indication: OSTEOMYELITIS
     Route: 040
     Dates: start: 20171117, end: 20171121
  17. GABAPENTIN CAPSULE 300MG SIG 1 PO Q BEDTIME [Concomitant]
     Dates: start: 20171122, end: 20171123
  18. ASPIRIN 81MG CHEWABLE TABLET SIG 1 PO Q DAY [Concomitant]
     Dates: start: 20171116, end: 20171124
  19. NALOXONE 0.4MG IV ONCE (GOT DOSE ON 11/20 1828) [Concomitant]
     Dates: start: 20171120, end: 20171120
  20. KLOR?CON ER 10MEQ TAB SIG 40MEQ PO ONCE DAILY [Concomitant]
     Dates: start: 20171111, end: 20171113
  21. FLUCONAZOLE 100MG PO Q DAY [Concomitant]
     Dates: start: 20171114, end: 20171120
  22. ZOSYN 3.375GM IVPB Q 6H X2, THEN 2.25GM IVPB Q 6H [Concomitant]
     Dates: start: 20171111, end: 20171114
  23. MORPHINE 1MG IV PRN, AT SHEATH SITE FOR SHEATH REMOVAL, MAY REPEAT X1 [Concomitant]
     Dates: start: 20171122, end: 20171122

REACTIONS (8)
  - Confusional state [None]
  - Dialysis [None]
  - Lethargy [None]
  - Postmenopausal haemorrhage [None]
  - Finger amputation [None]
  - Toxic encephalopathy [None]
  - Muscular weakness [None]
  - Asterixis [None]

NARRATIVE: CASE EVENT DATE: 20171121
